FAERS Safety Report 10510049 (Version 1)
Quarter: 2014Q4

REPORT INFORMATION
  Report Type: Spontaneous
  Country: US (occurrence: None)
  Receive Date: 20141009
  Receipt Date: 20141009
  Transmission Date: 20150528
  Serious: Yes (Hospitalization)
  Sender: FDA-Public Use
  Company Number: None

PATIENT
  Age: 78 Year
  Sex: Female
  Weight: 80.5 kg

DRUGS (26)
  1. CYCLOBENZAPRINEDICLOFENAC GEL) [Concomitant]
  2. ERGOCALCIFEROL. [Concomitant]
     Active Substance: ERGOCALCIFEROL
  3. FUROSEMIDE. [Concomitant]
     Active Substance: FUROSEMIDE
  4. GABAPENTIN. [Concomitant]
     Active Substance: GABAPENTIN
  5. IMDUR [Concomitant]
     Active Substance: ISOSORBIDE MONONITRATE
  6. METOPROLOL XL [Concomitant]
     Active Substance: METOPROLOL
  7. DIAZOPAM [Concomitant]
  8. HYDRALAZINE [Concomitant]
     Active Substance: HYDRALAZINE HYDROCHLORIDE
  9. POTASSIUM CHLORIDE. [Concomitant]
     Active Substance: POTASSIUM CHLORIDE
  10. CARDIZEM [Concomitant]
     Active Substance: DILTIAZEM HYDROCHLORIDE
  11. HYDROCODONE [Concomitant]
     Active Substance: HYDROCODONE
  12. IBUPROFEN. [Concomitant]
     Active Substance: IBUPROFEN
  13. MELOXICAM. [Concomitant]
     Active Substance: MELOXICAM
  14. ASPIRIN. [Concomitant]
     Active Substance: ASPIRIN
  15. LIDODERM [Concomitant]
     Active Substance: LIDOCAINE
  16. GLIPIZIDE. [Concomitant]
     Active Substance: GLIPIZIDE
  17. OXYCODONE [Concomitant]
     Active Substance: OXYCODONE
  18. APIXABAN [Suspect]
     Active Substance: APIXABAN
     Indication: THROMBOSIS PROPHYLAXIS
     Route: 048
     Dates: start: 201402, end: 20140331
  19. APIXABAN [Concomitant]
     Active Substance: APIXABAN
  20. METFORMAN [Concomitant]
  21. SIMVASTATIN. [Concomitant]
     Active Substance: SIMVASTATIN
  22. TERAZOSIN [Concomitant]
     Active Substance: TERAZOSIN\TERAZOSIN HYDROCHLORIDE
  23. APIXABAN [Suspect]
     Active Substance: APIXABAN
     Indication: ATRIAL FIBRILLATION
     Route: 048
     Dates: start: 201402, end: 20140331
  24. LISINOPRIL. [Concomitant]
     Active Substance: LISINOPRIL
  25. SOTALOL. [Concomitant]
     Active Substance: SOTALOL
  26. SPIRONOLACTONE. [Concomitant]
     Active Substance: SPIRONOLACTONE

REACTIONS (8)
  - Thrombosis [None]
  - Uraemic encephalopathy [None]
  - Small intestinal obstruction [None]
  - Sepsis [None]
  - Acute kidney injury [None]
  - Gastrointestinal haemorrhage [None]
  - Mental status changes [None]
  - Haematochezia [None]

NARRATIVE: CASE EVENT DATE: 20140331
